FAERS Safety Report 8431659-X (Version None)
Quarter: 2012Q2

REPORT INFORMATION
  Report Type: 
  Country: None (occurrence: None)
  Receive Date: 20120613
  Receipt Date: 20120530
  Transmission Date: 20120825
  Serious: Yes (Other)
  Sender: FDA-Public Use
  Company Number: US-JNJFOC-20120411131

PATIENT
  Sex: Male
  Weight: 34.93 kg

DRUGS (7)
  1. CONCERTA [Suspect]
     Route: 048
     Dates: start: 20090101
  2. ZYRTEC [Concomitant]
     Indication: MULTIPLE ALLERGIES
     Route: 048
     Dates: start: 20080101
  3. CONCERTA [Suspect]
     Indication: ATTENTION DEFICIT/HYPERACTIVITY DISORDER
     Route: 048
  4. CONCERTA [Suspect]
     Dosage: 54 MG AND 36 MG
     Route: 048
     Dates: start: 20120401
  5. BENADRYL [Concomitant]
     Indication: MULTIPLE ALLERGIES
     Route: 048
  6. CONCERTA [Suspect]
     Dosage: 54 MG AND 18 MG
     Route: 048
     Dates: end: 20120401
  7. CONCERTA [Suspect]
     Route: 048

REACTIONS (4)
  - DRUG INEFFECTIVE [None]
  - INCORRECT DOSE ADMINISTERED [None]
  - DEPENDENCE [None]
  - PYREXIA [None]
